FAERS Safety Report 9221253 (Version 2)
Quarter: 2013Q2

REPORT INFORMATION
  Report Type: Report from Study
  Country: PL (occurrence: PL)
  Receive Date: 20130410
  Receipt Date: 20130502
  Transmission Date: 20140414
  Serious: Yes (Hospitalization)
  Sender: FDA-Public Use
  Company Number: PL-BIOGENIDEC-2013BI015460

PATIENT
  Age: 54 Year
  Sex: Female
  Weight: 69 kg

DRUGS (6)
  1. BG00012 [Suspect]
     Indication: MULTIPLE SCLEROSIS
     Dates: start: 20100802
  2. IPP [Concomitant]
     Indication: VAGINITIS BACTERIAL
     Route: 048
     Dates: start: 20121114
  3. VITAMIN C [Concomitant]
     Indication: VAGINITIS BACTERIAL
     Route: 048
     Dates: start: 20121114
  4. TEGRETOL [Concomitant]
     Indication: MULTIPLE SCLEROSIS RELAPSE
     Route: 048
     Dates: start: 20121114
  5. TRIMEBUTINE MALEATE [Concomitant]
     Indication: REFLUX GASTRITIS
     Dates: start: 20130103
  6. URSOFALK [Concomitant]
     Indication: REFLUX GASTRITIS
     Dates: start: 20130103

REACTIONS (1)
  - Vaginal infection [Recovered/Resolved]
